FAERS Safety Report 10529771 (Version 3)
Quarter: 2015Q1

REPORT INFORMATION
  Report Type: Spontaneous
  Country: PL (occurrence: PL)
  Receive Date: 20141021
  Receipt Date: 20150128
  Transmission Date: 20150720
  Serious: Yes (Life-Threatening, Hospitalization, Other)
  Sender: FDA-Public Use
  Company Number: PL-ROCHE-1474593

PATIENT
  Age: 45 Year
  Sex: Female
  Weight: 50 kg

DRUGS (12)
  1. CYCLOPHOSPHAMIDE. [Suspect]
     Active Substance: CYCLOPHOSPHAMIDE
     Route: 042
     Dates: start: 200803, end: 200805
  2. MABTHERA [Suspect]
     Active Substance: RITUXIMAB
     Indication: CHRONIC LYMPHOCYTIC LEUKAEMIA
     Dosage: DAY 1. 2 LINE
     Route: 042
     Dates: start: 20101117
  3. MILURIT [Concomitant]
     Active Substance: ALLOPURINOL
     Route: 065
  4. MABTHERA [Suspect]
     Active Substance: RITUXIMAB
     Route: 042
     Dates: start: 200803, end: 200805
  5. CLADRIBINE. [Suspect]
     Active Substance: CLADRIBINE
     Dosage: FREQUENCY : DAYS 1 TO 3.
     Route: 042
     Dates: start: 20070111, end: 20070521
  6. CYCLOPHOSPHAMIDE. [Suspect]
     Active Substance: CYCLOPHOSPHAMIDE
     Dosage: FREQUENCY : DAYS 1 TO 3.
     Route: 042
     Dates: start: 20070111, end: 20070521
  7. ZOFRAN [Concomitant]
     Active Substance: ONDANSETRON HYDROCHLORIDE
     Route: 065
  8. CYCLOPHOSPHAMIDE. [Suspect]
     Active Substance: CYCLOPHOSPHAMIDE
     Indication: CHRONIC LYMPHOCYTIC LEUKAEMIA
     Dosage: 2 LINE DAY1-3
     Route: 042
     Dates: start: 20101117, end: 20110409
  9. ENTOCORT [Concomitant]
     Active Substance: BUDESONIDE
  10. CLADRIBINE. [Suspect]
     Active Substance: CLADRIBINE
     Route: 042
     Dates: start: 200803, end: 200805
  11. IDELALISIB [Suspect]
     Active Substance: IDELALISIB
     Indication: CHRONIC LYMPHOCYTIC LEUKAEMIA
     Route: 065
  12. CLADRIBINE. [Suspect]
     Active Substance: CLADRIBINE
     Indication: CHRONIC LYMPHOCYTIC LEUKAEMIA
     Dosage: 2 LINE, DAYS 1 - 3
     Route: 042
     Dates: start: 20101117, end: 20110409

REACTIONS (19)
  - Diarrhoea [Unknown]
  - Leukocytosis [Unknown]
  - Illogical thinking [Unknown]
  - Sleep disorder [Unknown]
  - Herpes zoster [Unknown]
  - Pneumonia [Unknown]
  - Anuria [Unknown]
  - Night sweats [Unknown]
  - Respiratory rate increased [Unknown]
  - Altered state of consciousness [Unknown]
  - Renal failure [Unknown]
  - Tachycardia [Unknown]
  - Dehydration [Unknown]
  - Electrolyte imbalance [Unknown]
  - Asthenia [Unknown]
  - Hypotension [Unknown]
  - Agranulocytosis [Recovered/Resolved]
  - Hepatic failure [Unknown]
  - Hepatomegaly [Unknown]

NARRATIVE: CASE EVENT DATE: 200805
